FAERS Safety Report 7387010-X (Version None)
Quarter: 2011Q1

REPORT INFORMATION
  Report Type: 
  Country: None (occurrence: None)
  Receive Date: 20110331
  Receipt Date: 20110328
  Transmission Date: 20110831
  Serious: Yes (Other)
  Sender: FDA-Public Use
  Company Number: JP-PFIZER INC-2011049528

PATIENT
  Age: 83 Year
  Sex: Female

DRUGS (5)
  1. PAXIL [Suspect]
     Indication: ANGINA PECTORIS
     Dosage: 40 MG, 1X/DAY
     Route: 048
     Dates: end: 20080711
  2. AMLODIN [Suspect]
     Indication: HYPERTENSION
     Dosage: 5 MG, 1X/DAY
     Route: 048
     Dates: start: 20080711
  3. ISOSORBIDE DINITRATE [Concomitant]
     Indication: ANGINA PECTORIS
     Dosage: 40 MG, 1X/DAY
     Route: 065
  4. LOXOPROFEN SODIUM [Concomitant]
     Indication: BACK PAIN
     Dosage: 60 MG, 1X/DAY
     Route: 048
  5. RENIVACE [Concomitant]
     Indication: HYPERTENSION
     Dosage: 5 MG, 1X/DAY
     Route: 048

REACTIONS (1)
  - PARKINSONISM [None]
